FAERS Safety Report 24739546 (Version 1)
Quarter: 2024Q4

REPORT INFORMATION
  Report Type: Spontaneous
  Country: US (occurrence: US)
  Receive Date: 20241216
  Receipt Date: 20241216
  Transmission Date: 20250114
  Serious: Yes (Death)
  Sender: INCYTE
  Company Number: US-002147023-NVSC2024US235955

PATIENT

DRUGS (6)
  1. JAKAFI [Suspect]
     Active Substance: RUXOLITINIB
     Indication: Adrenoleukodystrophy
     Dosage: 10 MG, QD (PER DAY UNTIL BEVACIZUMAB WAS DISCONTINUED; 9 CYCLES)
     Route: 048
  2. JAKAFI [Suspect]
     Active Substance: RUXOLITINIB
     Indication: Cerebral disorder
  3. BEVACIZUMAB [Suspect]
     Active Substance: BEVACIZUMAB
     Indication: Adrenoleukodystrophy
     Dosage: 10 MG/M2, Q2W (9 CYCLES)
     Route: 042
  4. BEVACIZUMAB [Suspect]
     Active Substance: BEVACIZUMAB
     Indication: Cerebral disorder
  5. DEXAMETHASONE [Suspect]
     Active Substance: DEXAMETHASONE
     Indication: Adrenoleukodystrophy
     Dosage: 10 MG, QD (PER DAY FOR 5 DAYS ON THE WEEK OF BEVACIZUMAB INFUSION; 9 CYCLES)
     Route: 048
  6. DEXAMETHASONE [Suspect]
     Active Substance: DEXAMETHASONE
     Indication: Cerebral disorder

REACTIONS (3)
  - Adrenoleukodystrophy [Fatal]
  - Disease progression [Fatal]
  - Drug ineffective for unapproved indication [Fatal]
